FAERS Safety Report 7229636-X (Version None)
Quarter: 2011Q1

REPORT INFORMATION
  Report Type: 
  Country: None (occurrence: None)
  Receive Date: 20110117
  Receipt Date: 20110104
  Transmission Date: 20110831
  Serious: Yes (Hospitalization, Other)
  Sender: FDA-Public Use
  Company Number: PHHY2010NZ15133

PATIENT
  Sex: Female
  Weight: 101 kg

DRUGS (2)
  1. CLOZARIL [Suspect]
     Indication: SCHIZOPHRENIA
     Dosage: UNK
     Route: 048
     Dates: start: 20060410
  2. CLOZARIL [Suspect]
     Dosage: 200 MG NOCTE AND 50 MG MANE
     Route: 048
     Dates: start: 20100520

REACTIONS (1)
  - CATATONIA [None]
